FAERS Safety Report 24364062 (Version 2)
Quarter: 2024Q4

REPORT INFORMATION
  Report Type: Spontaneous
  Country: CH (occurrence: CH)
  Receive Date: 20240925
  Receipt Date: 20241008
  Transmission Date: 20250115
  Serious: Yes (Other)
  Sender: OPKO HEALTH
  Company Number: CH-OPKO PHARMACEUTICALS, LLC.-2024OPK00249

PATIENT
  Sex: Male

DRUGS (1)
  1. RAYALDEE [Suspect]
     Active Substance: CALCIFEDIOL
     Indication: Product used for unknown indication
     Dosage: 30 MCG, QD

REACTIONS (3)
  - Hypervitaminosis D [Unknown]
  - Blood parathyroid hormone decreased [Unknown]
  - Vitamin D increased [Unknown]
